FAERS Safety Report 22108029 (Version 1)
Quarter: 2023Q1

REPORT INFORMATION
  Report Type: Spontaneous
  Country: US (occurrence: None)
  Receive Date: 20230317
  Receipt Date: 20230317
  Transmission Date: 20230417
  Serious: No
  Sender: FDA-Public Use
  Company Number: 2023A042282

PATIENT
  Age: 77 Year
  Sex: Male

DRUGS (2)
  1. CALQUENCE [Suspect]
     Active Substance: ACALABRUTINIB
     Indication: Chronic lymphocytic leukaemia
     Dosage: 100.0MG AS REQUIRED
     Route: 048
  2. IMBRUVICA [Concomitant]
     Active Substance: IBRUTINIB

REACTIONS (2)
  - Anaemia [Unknown]
  - Drug ineffective [Unknown]
